FAERS Safety Report 8458283-7 (Version None)
Quarter: 2012Q2

REPORT INFORMATION
  Report Type: 
  Country: None (occurrence: None)
  Receive Date: 20120622
  Receipt Date: 20120615
  Transmission Date: 20120825
  Serious: Yes (Disabling)
  Sender: FDA-Public Use
  Company Number: BR-B.I. PHARMACEUTICALS,INC./RIDGEFIELD-2012-BR-00650BR

PATIENT
  Age: 82 Year
  Sex: Male

DRUGS (5)
  1. CRESTOR [Concomitant]
     Indication: DYSLIPIDAEMIA
  2. CARVEDILOL [Concomitant]
     Indication: TRANSMYOCARDIAL REVASCULARISATION
  3. PRADAXA [Suspect]
     Indication: ATRIAL FIBRILLATION
     Dosage: 220 MG
     Route: 048
     Dates: start: 20111201
  4. DIOVAN [Concomitant]
     Indication: HYPERTENSION
  5. EPLERENONE [Concomitant]
     Indication: TRANSMYOCARDIAL REVASCULARISATION

REACTIONS (2)
  - ARTERIAL THROMBOSIS [None]
  - RETINAL ISCHAEMIA [None]
